FAERS Safety Report 9652179 (Version 1)
Quarter: 2013Q4

REPORT INFORMATION
  Report Type: Spontaneous
  Country: IT (occurrence: None)
  Receive Date: 20131025
  Receipt Date: 20131025
  Transmission Date: 20140711
  Serious: Yes (Death, Other)
  Sender: FDA-Public Use
  Company Number: ADR-2013-01928

PATIENT
  Sex: Male

DRUGS (1)
  1. BACLOFEN INTRATHECAL [Suspect]
     Indication: MUSCLE SPASTICITY

REACTIONS (1)
  - Renal failure [None]
